FAERS Safety Report 19315398 (Version 4)
Quarter: 2021Q3

REPORT INFORMATION
  Report Type: Spontaneous
  Country: JP (occurrence: JP)
  Receive Date: 20210527
  Receipt Date: 20210702
  Transmission Date: 20211014
  Serious: Yes (Hospitalization, Disabling, Other)
  Sender: FDA-Public Use
  Company Number: JP-ASTRAZENECA-2021A423102

PATIENT
  Age: 89 Year
  Sex: Female
  Weight: 42 kg

DRUGS (14)
  1. TENELIA [Concomitant]
     Active Substance: TENELIGLIPTIN
     Route: 048
  2. PLAVIX [Concomitant]
     Active Substance: CLOPIDOGREL BISULFATE
     Route: 048
  3. ARTIST [Concomitant]
     Active Substance: CARVEDILOL
     Route: 048
  4. AZILVA [Concomitant]
     Active Substance: AZILSARTAN KAMEDOXOMIL
     Route: 048
  5. LOKELMA [Suspect]
     Active Substance: SODIUM ZIRCONIUM CYCLOSILICATE
     Indication: HYPERKALAEMIA
     Dosage: ON NON?DIALYSIS DAY, AFTER DINNER
     Route: 048
     Dates: start: 20201109, end: 20210105
  6. LOKELMA [Suspect]
     Active Substance: SODIUM ZIRCONIUM CYCLOSILICATE
     Indication: HYPERKALAEMIA
     Dosage: 5 G, TWICE A WEEK, ONLY TUE AND SAT, AFTER DINNER
     Route: 048
     Dates: start: 20200106, end: 20210113
  7. MEVALOTIN [Concomitant]
     Active Substance: PRAVASTATIN SODIUM
     Route: 048
  8. TRIAZOLAM. [Concomitant]
     Active Substance: TRIAZOLAM
     Dosage: BEFORE BEDTIME
     Route: 048
  9. FUROSEMIDE. [Concomitant]
     Active Substance: FUROSEMIDE
     Route: 048
  10. KIKLIN [Concomitant]
     Active Substance: BIXALOMER
     Route: 048
  11. VOGLIBOSE [Concomitant]
     Active Substance: VOGLIBOSE
     Route: 048
  12. SUREPOST [Concomitant]
     Active Substance: REPAGLINIDE
     Route: 048
  13. ADALAT CC [Concomitant]
     Active Substance: NIFEDIPINE
     Route: 048
  14. ROCALTROL [Concomitant]
     Active Substance: CALCITRIOL
     Dosage: 0.5UG UNKNOWN
     Route: 065

REACTIONS (5)
  - Cerebral infarction [Unknown]
  - Hypokalaemia [Recovered/Resolved]
  - Atrial fibrillation [Not Recovered/Not Resolved]
  - Hypotension [Recovering/Resolving]
  - Bradycardia [Recovering/Resolving]

NARRATIVE: CASE EVENT DATE: 20201223
